FAERS Safety Report 21022634 (Version 1)
Quarter: 2022Q2

REPORT INFORMATION
  Report Type: Spontaneous
  Country: DE (occurrence: DE)
  Receive Date: 20220629
  Receipt Date: 20220629
  Transmission Date: 20220721
  Serious: Yes (Other)
  Sender: FDA-Public Use
  Company Number: DE-PFIZER INC-202101586596

PATIENT
  Sex: Male

DRUGS (1)
  1. LORLATINIB [Suspect]
     Active Substance: LORLATINIB
     Dosage: UNK

REACTIONS (6)
  - Mental disorder [Recovered/Resolved]
  - Nervous system disorder [Recovered/Resolved]
  - Personality change [Recovered/Resolved]
  - Suicidal ideation [Recovered/Resolved]
  - Acute psychosis [Recovered/Resolved]
  - Neoplasm progression [Unknown]
